FAERS Safety Report 5717565-X (Version None)
Quarter: 2008Q2

REPORT INFORMATION
  Report Type: 
  Country: None (occurrence: None)
  Receive Date: 20080425
  Receipt Date: 20080416
  Transmission Date: 20081010
  Serious: Yes (Hospitalization)
  Sender: FDA-Public Use
  Company Number: CA-JNJFOC-20071006440

PATIENT
  Age: 53 Year
  Sex: Male

DRUGS (18)
  1. REMICADE [Suspect]
     Route: 042
  2. REMICADE [Suspect]
     Route: 042
  3. REMICADE [Suspect]
     Route: 042
  4. REMICADE [Suspect]
     Route: 042
  5. REMICADE [Suspect]
     Route: 042
  6. REMICADE [Suspect]
     Route: 042
  7. REMICADE [Suspect]
     Route: 042
  8. REMICADE [Suspect]
     Route: 042
  9. REMICADE [Suspect]
     Route: 042
  10. REMICADE [Suspect]
     Route: 042
  11. REMICADE [Suspect]
     Indication: CROHN'S DISEASE
     Route: 042
  12. PENTASA [Concomitant]
  13. PANTOPRAZOLE SODIUM [Concomitant]
  14. FOSAMAX [Concomitant]
  15. CALCIUM WITH VITAMIN D [Concomitant]
  16. PURINETHOL [Concomitant]
  17. PREDNISONE [Concomitant]
  18. MINOCYCLINE HCL [Concomitant]

REACTIONS (2)
  - GASTROINTESTINAL DISORDER [None]
  - INFECTION [None]
